FAERS Safety Report 10600245 (Version 1)
Quarter: 2014Q4

REPORT INFORMATION
  Report Type: Spontaneous
  Country: US (occurrence: CA)
  Receive Date: 20141122
  Receipt Date: 20141122
  Transmission Date: 20150529
  Serious: Yes (Other)
  Sender: FDA-Public Use
  Company Number: US-PERRIGO-14CA011243

PATIENT

DRUGS (1)
  1. MESALAMINE RX 66.667 MG/ML 2N9 [Suspect]
     Active Substance: MESALAMINE
     Indication: PRODUCT USED FOR UNKNOWN INDICATION
     Dosage: UNK, UNK
     Route: 054

REACTIONS (1)
  - Tubulointerstitial nephritis [Unknown]
